FAERS Safety Report 25619755 (Version 1)
Quarter: 2025Q3

REPORT INFORMATION
  Report Type: Report from Study
  Country: US (occurrence: US)
  Receive Date: 20250729
  Receipt Date: 20250729
  Transmission Date: 20251021
  Serious: Yes (Hospitalization, Other)
  Sender: ABBVIE
  Company Number: US-ABBVIE-6387325

PATIENT
  Sex: Female

DRUGS (1)
  1. RINVOQ [Suspect]
     Active Substance: UPADACITINIB
     Indication: Product used for unknown indication
     Route: 048

REACTIONS (8)
  - Gastrointestinal disorder [Recovering/Resolving]
  - Shock [Recovering/Resolving]
  - Illness [Unknown]
  - Crohn^s disease [Recovering/Resolving]
  - Dizziness [Unknown]
  - Vomiting [Unknown]
  - Intestinal sepsis [Unknown]
  - Intestinal perforation [Unknown]
